FAERS Safety Report 9150549 (Version 2)
Quarter: 2014Q1

REPORT INFORMATION
  Report Type: Spontaneous
  Country: US (occurrence: US)
  Receive Date: 20130308
  Receipt Date: 20140311
  Transmission Date: 20141002
  Serious: No
  Sender: FDA-Public Use
  Company Number: US-GLAXOSMITHKLINE-A0997660A

PATIENT
  Age: 51 Year
  Sex: Male

DRUGS (2)
  1. NICORETTE FRUIT CHILL OTC 4MG [Suspect]
     Indication: EX-TOBACCO USER
     Dates: start: 20121005
  2. UNKNOWN MEDICATION [Concomitant]

REACTIONS (5)
  - Pruritus [Recovered/Resolved]
  - Paraesthesia [Recovered/Resolved]
  - Hiccups [Recovered/Resolved]
  - Product quality issue [Unknown]
  - Drug administration error [Unknown]
